FAERS Safety Report 5796344-1 (Version None)
Quarter: 2008Q2

REPORT INFORMATION
  Report Type: 
  Country: None (occurrence: None)
  Receive Date: 20080618
  Receipt Date: 20070828
  Transmission Date: 20081010
  Serious: Yes (Other)
  Sender: FDA-Public Use
  Company Number: 200714894US

PATIENT
  Age: 46 Year
  Sex: Male

DRUGS (19)
  1. LANTUS [Suspect]
     Indication: TYPE 1 DIABETES MELLITUS
     Dosage: 26 U QAM
     Dates: start: 20070601
  2. LANTUS [Suspect]
     Indication: TYPE 1 DIABETES MELLITUS
     Dosage: VIA SYRINGE U QAM
     Dates: end: 20070601
  3. OPTICLIK [Suspect]
     Indication: TYPE 1 DIABETES MELLITUS
     Dates: start: 20070601
  4. INSULIN LISPRO (HUMALOG /01293501/) [Concomitant]
  5. NEORAL [Concomitant]
  6. PREDNISONE TAB [Concomitant]
  7. LASIX [Concomitant]
  8. TOPROL-XL [Concomitant]
  9. CLOPIDOGREL (PLAVIX /01220701/) [Concomitant]
  10. DOXAZOSIN (CARDURA /00639301/) [Concomitant]
  11. ESOMEPRAZOLE [Concomitant]
  12. PRAVASTATIN [Concomitant]
  13. IMDUR [Concomitant]
  14. ASPIRIN [Concomitant]
  15. ARANESP [Concomitant]
  16. PARICALCITOL (ZEMPLAR) [Concomitant]
  17. ROPINIROLE HYDROCHLORIDE (REQUIP) [Concomitant]
  18. EYE DROPS NOS FOR GLAUCOMA [Concomitant]
  19. AMBIEN [Concomitant]

REACTIONS (4)
  - ASTHENIA [None]
  - BALANCE DISORDER [None]
  - HYPERHIDROSIS [None]
  - HYPOGLYCAEMIA [None]
